FAERS Safety Report 9551289 (Version 3)
Quarter: 2013Q4

REPORT INFORMATION
  Report Type: Report from Study
  Country: CO (occurrence: CO)
  Receive Date: 20130925
  Receipt Date: 20131004
  Transmission Date: 20140711
  Serious: Yes (Other)
  Sender: FDA-Public Use
  Company Number: CO-ROCHE-1279670

PATIENT
  Age: 63 Year
  Sex: Female
  Weight: 66 kg

DRUGS (7)
  1. LUCENTIS [Suspect]
     Indication: HEADACHE
     Route: 050
     Dates: start: 20130809
  2. LUCENTIS [Suspect]
     Indication: VISION BLURRED
  3. LUCENTIS [Suspect]
     Indication: MACULAR DEGENERATION
  4. ACETYLSALICYLIC ACID [Concomitant]
     Route: 060
  5. VALSARTAN [Concomitant]
     Indication: HYPERTENSION
     Route: 048
  6. INSULIN [Concomitant]
     Route: 065
  7. METFORMIN [Concomitant]

REACTIONS (7)
  - Eye haemorrhage [Recovering/Resolving]
  - Fall [Unknown]
  - Head injury [Unknown]
  - Back pain [Recovered/Resolved]
  - Injury [Unknown]
  - Intervertebral disc protrusion [Unknown]
  - Arthralgia [Unknown]
